FAERS Safety Report 7936383-5 (Version None)
Quarter: 2011Q4

REPORT INFORMATION
  Report Type: 
  Country: None (occurrence: None)
  Receive Date: 20111121
  Receipt Date: 20111107
  Transmission Date: 20120403
  Serious: Yes (Hospitalization)
  Sender: FDA-Public Use
  Company Number: NSR_00310_2011

PATIENT
  Sex: Female

DRUGS (13)
  1. LAMOTRIGINE [Suspect]
     Indication: DEPRESSION
     Dosage: (100 MG, [QAM] ORAL)
     Dates: start: 20110826, end: 20110830
  2. LAMOTRIGINE [Suspect]
     Indication: AFFECTIVE DISORDER
     Dosage: (100 MG, [QAM] ORAL)
     Dates: start: 20110826, end: 20110830
  3. COUMADIN [Concomitant]
  4. CELEXA [Concomitant]
  5. COLACE [Concomitant]
  6. COREG [Concomitant]
  7. SENNA PLUS /00142201 [Concomitant]
  8. RAMIPRIL [Concomitant]
  9. SYNTHROID [Concomitant]
  10. LAMOTRIGINE [Suspect]
     Indication: AFFECTIVE DISORDER
     Dosage: (50 MG), (100 MG)
     Dates: end: 20110823
  11. LAMOTRIGINE [Suspect]
     Indication: DEPRESSION
     Dosage: (50 MG), (100 MG)
     Dates: end: 20110823
  12. LAMOTRIGINE [Suspect]
     Indication: AFFECTIVE DISORDER
     Dosage: (50 MG), (100 MG)
     Dates: start: 20110823, end: 20110826
  13. LAMOTRIGINE [Suspect]
     Indication: DEPRESSION
     Dosage: (50 MG), (100 MG)
     Dates: start: 20110823, end: 20110826

REACTIONS (3)
  - DRUG RASH WITH EOSINOPHILIA AND SYSTEMIC SYMPTOMS [None]
  - DRUG PRESCRIBING ERROR [None]
  - NERVE INJURY [None]
